FAERS Safety Report 9907583 (Version 3)
Quarter: 2014Q2

REPORT INFORMATION
  Report Type: Report from Study
  Country: CA (occurrence: CA)
  Receive Date: 20140218
  Receipt Date: 20140603
  Transmission Date: 20141212
  Serious: Yes (Other)
  Sender: FDA-Public Use
  Company Number: CA-ROCHE-1348217

PATIENT
  Sex: Female

DRUGS (8)
  1. ACTEMRA [Suspect]
     Indication: RHEUMATOID ARTHRITIS
     Route: 042
     Dates: start: 20130516
  2. METHOTREXATE [Concomitant]
     Route: 058
  3. FOLIC ACID [Concomitant]
  4. METFORMIN [Concomitant]
  5. ACTONEL [Concomitant]
  6. ASA [Concomitant]
     Route: 065
  7. RAMIPRIL [Concomitant]
  8. TECTA [Concomitant]

REACTIONS (1)
  - Arthropathy [Recovered/Resolved]
